FAERS Safety Report 21602233 (Version 1)
Quarter: 2022Q4

REPORT INFORMATION
  Report Type: Spontaneous
  Country: US (occurrence: US)
  Receive Date: 20221116
  Receipt Date: 20221116
  Transmission Date: 20230112
  Serious: Yes (Other)
  Sender: FDA-Public Use
  Company Number: US-Hikma Pharmaceuticals USA Inc.-US-H14001-22-02890

PATIENT
  Age: 59 Year
  Sex: Male
  Weight: 80 kg

DRUGS (18)
  1. PREDNISONE [Suspect]
     Active Substance: PREDNISONE
     Indication: Product used for unknown indication
     Dosage: UNKNOWN
     Route: 065
  2. JAKAFI [Suspect]
     Active Substance: RUXOLITINIB
     Indication: Chronic graft versus host disease
     Route: 048
     Dates: start: 20161001, end: 20170131
  3. JAKAFI [Suspect]
     Active Substance: RUXOLITINIB
     Route: 048
     Dates: start: 201609, end: 201701
  4. JAKAFI [Suspect]
     Active Substance: RUXOLITINIB
     Route: 048
  5. ITRACONAZOLE [Concomitant]
     Active Substance: ITRACONAZOLE
     Indication: Product used for unknown indication
     Dosage: UNKNOWN
     Route: 065
  6. ASPIRIN [Concomitant]
     Active Substance: ASPIRIN
     Indication: Product used for unknown indication
     Dosage: UNKNOWN
     Route: 065
  7. IVIGLOB EX [Concomitant]
     Active Substance: HUMAN IMMUNOGLOBULIN G
     Indication: Product used for unknown indication
     Dosage: UNKNOWN
     Route: 065
  8. VITAMIN B12 [Concomitant]
     Active Substance: CYANOCOBALAMIN
     Indication: Product used for unknown indication
     Dosage: UNKNOWN
     Route: 065
  9. VITAMIN D [Concomitant]
     Active Substance: VITAMIN D NOS
     Indication: Product used for unknown indication
     Dosage: UNKNOWN
     Route: 065
  10. NADOLOL [Concomitant]
     Active Substance: NADOLOL
     Indication: Product used for unknown indication
     Dosage: UNKNOWN
     Route: 065
  11. REFRESH PLUS [Concomitant]
     Active Substance: CARBOXYMETHYLCELLULOSE SODIUM
     Indication: Product used for unknown indication
     Dosage: UNKNOWN
     Route: 065
  12. EPINEPHRINE [Concomitant]
     Active Substance: EPINEPHRINE
     Indication: Product used for unknown indication
     Dosage: UNKNOWN
     Route: 065
  13. VITAMINS [Concomitant]
     Active Substance: VITAMINS
     Indication: Product used for unknown indication
     Dosage: UNKNOWN
     Route: 065
  14. ZOFRAN [Concomitant]
     Active Substance: ONDANSETRON HYDROCHLORIDE
     Indication: Product used for unknown indication
     Dosage: UNKNOWN
     Route: 065
  15. MIRALAX [Concomitant]
     Active Substance: POLYETHYLENE GLYCOL 3350
     Indication: Product used for unknown indication
     Dosage: UNKNOWN
     Route: 065
  16. AMOXICILLIN [Concomitant]
     Active Substance: AMOXICILLIN
     Indication: Product used for unknown indication
     Dosage: UNKNOWN
     Route: 065
  17. COENZYME Q10 [Concomitant]
     Active Substance: DIETARY SUPPLEMENT\UBIDECARENONE
     Indication: Product used for unknown indication
     Dosage: UNKNOWN
     Route: 065
  18. FLOMAX [Concomitant]
     Active Substance: TAMSULOSIN HYDROCHLORIDE
     Indication: Product used for unknown indication
     Dosage: UNKNOWN
     Route: 065

REACTIONS (10)
  - Ankylosing spondylitis [Unknown]
  - Neuropathy peripheral [Unknown]
  - Skin tightness [Unknown]
  - Back pain [Unknown]
  - Skin erosion [Recovered/Resolved]
  - Joint contracture [Unknown]
  - Iron deficiency anaemia [Unknown]
  - Bronchitis chronic [Unknown]
  - Muscle spasms [Unknown]
  - Osteoporosis [Unknown]

NARRATIVE: CASE EVENT DATE: 20151130
